FAERS Safety Report 16443737 (Version 1)
Quarter: 2019Q2

REPORT INFORMATION
  Report Type: Report from Study
  Country: None (occurrence: CA)
  Receive Date: 20190618
  Receipt Date: 20190618
  Transmission Date: 20190711
  Serious: Yes (Other)
  Sender: FDA-Public Use
  Company Number: CA-ABBVIE-19S-028-2679520-00

PATIENT
  Age: 68 Year
  Sex: Male

DRUGS (5)
  1. VITAMIN D [Concomitant]
     Active Substance: VITAMIN D NOS
     Indication: PRODUCT USED FOR UNKNOWN INDICATION
  2. CALCIUM [Concomitant]
     Active Substance: CALCIUM
     Indication: PRODUCT USED FOR UNKNOWN INDICATION
  3. LUPRON DEPOT-PED [Suspect]
     Active Substance: LEUPROLIDE ACETATE
     Route: 058
  4. LUPRON DEPOT-PED [Suspect]
     Active Substance: LEUPROLIDE ACETATE
     Indication: PROSTATE CANCER
     Route: 058
     Dates: start: 20180314
  5. BICALUTAMIDE. [Concomitant]
     Active Substance: BICALUTAMIDE
     Indication: PRODUCT USED FOR UNKNOWN INDICATION

REACTIONS (27)
  - Nipple swelling [Unknown]
  - Weight increased [Unknown]
  - Headache [Unknown]
  - Sleep disorder [Unknown]
  - Breast oedema [Unknown]
  - Stress [Unknown]
  - Fatigue [Unknown]
  - Radiation associated haemorrhage [Unknown]
  - Hyperhidrosis [Unknown]
  - Hot flush [Unknown]
  - Thrombosis [Unknown]
  - Chest pain [Unknown]
  - Migraine [Unknown]
  - Impatience [Unknown]
  - Myalgia [Unknown]
  - Mood altered [Unknown]
  - Skin odour abnormal [Unknown]
  - Dyspepsia [Unknown]
  - Arthralgia [Unknown]
  - Loss of libido [Unknown]
  - Abdominal distension [Unknown]
  - Colonoscopy [Unknown]
  - Anxiety [Unknown]
  - Flatulence [Unknown]
  - Muscular weakness [Unknown]
  - Pain [Unknown]
  - Asthenia [Unknown]

NARRATIVE: CASE EVENT DATE: 201901
